FAERS Safety Report 5673908-7 (Version None)
Quarter: 2008Q2

REPORT INFORMATION
  Report Type: 
  Country: None (occurrence: None)
  Receive Date: 20080226
  Receipt Date: 20071031
  Transmission Date: 20081010
  Serious: Yes (Hospitalization, Disabling)
  Sender: FDA-Public Use
  Company Number: 528598

PATIENT
  Sex: Female

DRUGS (2)
  1. ACCUTANE [Suspect]
     Indication: DRUG USE FOR UNKNOWN INDICATION
     Dates: start: 20031020, end: 20040405
  2. AMNESTEEM [Suspect]
     Indication: ACNE
     Dates: start: 20060317, end: 20060902

REACTIONS (1)
  - INFLAMMATORY BOWEL DISEASE [None]
